FAERS Safety Report 7392593-X (Version None)
Quarter: 2011Q2

REPORT INFORMATION
  Report Type: 
  Country: None (occurrence: None)
  Receive Date: 20110404
  Receipt Date: 20110329
  Transmission Date: 20111010
  Serious: Yes (Life-Threatening, Hospitalization)
  Sender: FDA-Public Use
  Company Number: US-ASTRAZENECA-2011SE13677

PATIENT
  Age: 38 Year
  Sex: Male
  Weight: 77.1 kg

DRUGS (7)
  1. LAMICTAL [Concomitant]
  2. LOTRIL [Concomitant]
     Indication: HYPERTENSION
     Dosage: 5/10
  3. SYNTHROID [Concomitant]
     Indication: HYPOTHYROIDISM
  4. ZOLOFT [Concomitant]
  5. SEROQUEL [Suspect]
     Indication: BIPOLAR DISORDER
     Route: 048
     Dates: start: 20100101
  6. KLONOPIN [Concomitant]
  7. SEROQUEL [Suspect]
     Route: 048
     Dates: start: 20100301

REACTIONS (3)
  - SUBDURAL HAEMATOMA [None]
  - DRUG INEFFECTIVE [None]
  - FALL [None]
